FAERS Safety Report 5664155-3 (Version None)
Quarter: 2008Q1

REPORT INFORMATION
  Report Type: 
  Country: None (occurrence: None)
  Receive Date: 20080312
  Receipt Date: 20080226
  Transmission Date: 20080703
  Serious: Yes (Hospitalization, Other)
  Sender: FDA-Public Use
  Company Number: 230498J08USA

PATIENT
  Age: 57 Year
  Sex: Female
  Weight: 73.9363 kg

DRUGS (6)
  1. REBIF [Suspect]
     Indication: MULTIPLE SCLEROSIS
     Dosage: 44 MCG, 3 IN 1 WEEKS, SUBCUTANEOUS
     Route: 058
     Dates: start: 20070201
  2. ATENOLOL [Concomitant]
  3. QUINAPRIL HCL [Concomitant]
  4. HYDROCHLOROTHIAZIDE [Concomitant]
  5. NEURONTIN [Concomitant]
  6. AMITRIPTYLINE HCL [Concomitant]

REACTIONS (5)
  - BLOOD CHOLESTEROL INCREASED [None]
  - CARDIAC ENZYMES INCREASED [None]
  - HEART RATE ABNORMAL [None]
  - HEPATIC STEATOSIS [None]
  - SYNCOPE [None]
